FAERS Safety Report 13292564 (Version 1)
Quarter: 2017Q1

REPORT INFORMATION
  Report Type: Spontaneous
  Country: ES (occurrence: ES)
  Receive Date: 20170303
  Receipt Date: 20170303
  Transmission Date: 20170428
  Serious: Yes (Hospitalization)
  Sender: FDA-Public Use
  Company Number: ES-BAYER-2017-036944

PATIENT
  Age: 64 Year
  Sex: Male
  Weight: 57 kg

DRUGS (5)
  1. CALCIPOTRIOL [Concomitant]
     Active Substance: CALCIPOTRIENE
     Route: 061
  2. BETAMETHASONE [BETAMETHASONE] [Concomitant]
     Active Substance: BETAMETHASONE
  3. NEXAVAR [Suspect]
     Active Substance: SORAFENIB
     Indication: HEPATIC CANCER
     Dosage: 400 MG, BID
     Route: 048
     Dates: start: 20161108, end: 20161121
  4. CALCIPOTRIOL [Concomitant]
     Active Substance: CALCIPOTRIENE
     Route: 048
  5. CALCIFEDIOL [Concomitant]
     Active Substance: CALCIFEDIOL

REACTIONS (1)
  - Acute generalised exanthematous pustulosis [Recovered/Resolved]

NARRATIVE: CASE EVENT DATE: 20161114
